FAERS Safety Report 9004414 (Version 2)
Quarter: 2013Q1

REPORT INFORMATION
  Report Type: Report from Study
  Country: PT (occurrence: PT)
  Receive Date: 20130108
  Receipt Date: 20130115
  Transmission Date: 20140127
  Serious: Yes (Other)
  Sender: FDA-Public Use
  Company Number: PT-ASTELLAS-2012EU011525

PATIENT
  Age: 24 Year
  Sex: Female
  Weight: 49 kg

DRUGS (1)
  1. BLINDED SOLIFENACIN-MIRABEGRON [Suspect]
     Indication: HYPERTONIC BLADDER
     Dosage: UNK
     Route: 065

REACTIONS (4)
  - Nausea [Unknown]
  - Vision blurred [Recovered/Resolved]
  - Headache [Unknown]
  - Abdominal pain upper [Recovering/Resolving]
